FAERS Safety Report 5788278-3 (Version None)
Quarter: 2008Q2

REPORT INFORMATION
  Report Type: 
  Country: None (occurrence: None)
  Receive Date: 20080625
  Receipt Date: 20080613
  Transmission Date: 20081010
  Serious: Yes (Other)
  Sender: FDA-Public Use
  Company Number: US-PFIZER INC-2007087073

PATIENT
  Sex: Female
  Weight: 99.3 kg

DRUGS (7)
  1. CHANTIX [Suspect]
     Indication: SMOKING CESSATION THERAPY
     Dates: start: 20070501, end: 20070827
  2. PROZAC [Concomitant]
     Indication: DEPRESSION
  3. WELLBUTRIN [Concomitant]
     Indication: DEPRESSION
  4. SEROQUEL [Concomitant]
     Indication: DEPRESSION
  5. REMERON [Concomitant]
     Indication: DEPRESSION
  6. COGENTIN [Concomitant]
  7. CHOLESTEROL- AND TRIGLYCERIDE REDUCERS [Concomitant]

REACTIONS (12)
  - ABNORMAL BEHAVIOUR [None]
  - AFFECT LABILITY [None]
  - AGGRESSION [None]
  - ANGER [None]
  - BIPOLAR DISORDER [None]
  - DISTURBANCE IN SOCIAL BEHAVIOUR [None]
  - FEELING ABNORMAL [None]
  - IMPATIENCE [None]
  - PERSONALITY CHANGE [None]
  - TOOTH EXTRACTION [None]
  - WEIGHT DECREASED [None]
  - WEIGHT INCREASED [None]
